FAERS Safety Report 5691930-1 (Version None)
Quarter: 2008Q1

REPORT INFORMATION
  Report Type: 
  Country: None (occurrence: None)
  Receive Date: 20080331
  Receipt Date: 20080317
  Transmission Date: 20080703
  Serious: Yes (Hospitalization)
  Sender: FDA-Public Use
  Company Number: DSJ-2008-02137(2)

PATIENT
  Age: 81 Year
  Sex: Female
  Weight: 51 kg

DRUGS (11)
  1. OLMESARTAN MEDOXOMIL [Suspect]
     Indication: HYPERTENSION
     Dosage: 40 MG (20 MG,2 IN 1 D), PER ORAL
     Route: 048
     Dates: start: 20070317, end: 20071126
  2. LASIX(FUROSEMIDE)(TABLET)(FUROSEMIDE) [Concomitant]
  3. ACETYLSALICYLIC ACID SRT [Concomitant]
  4. DOXAZOSIN MESYLATE [Concomitant]
  5. NORVASC [Concomitant]
  6. HALF DIGOXIN (DIGOXIN) (TABLET) (DIGOXIN) [Concomitant]
  7. CIBENOL (CIBENZOLINE SUCCINATE) (TABLET) (CIBENZOLINE   SUCCINATE) [Concomitant]
  8. GASTER D (FAMOTIDINE) (TABLET) (FAMOTIDINE) [Concomitant]
  9. KREMEZIN (CHARCOAL, ACTIVATED) (CHARCOAL, ACTIVATED) [Concomitant]
  10. JUSO (SODIUM BICARBONATE)(SODIUM BICARBONATE) [Concomitant]
  11. FRANDOL (ISOSORBIDE DINITRATE)(POULTICE OR PATCH)(ISOSORBIDE DINITRATE [Concomitant]

REACTIONS (3)
  - CARDIAC FAILURE [None]
  - CONDITION AGGRAVATED [None]
  - RENAL FAILURE [None]
